FAERS Safety Report 7638706-3 (Version None)
Quarter: 2011Q3

REPORT INFORMATION
  Report Type: 
  Country: None (occurrence: None)
  Receive Date: 20110718
  Receipt Date: 20110125
  Transmission Date: 20111222
  Serious: Yes (Hospitalization)
  Sender: FDA-Public Use
  Company Number: 20110125CINRY1786

PATIENT
  Age: 71 Year
  Sex: Male

DRUGS (2)
  1. CINRYZE [Suspect]
     Indication: HEREDITARY ANGIOEDEMA
     Dosage: (1000 UNIT, 1 IN 3 D), INTRAVENOUS
     Route: 042
  2. CINRYZE [Suspect]
     Indication: PROPHYLAXIS
     Dosage: (1000 UNIT, 1 IN 3 D), INTRAVENOUS
     Route: 042

REACTIONS (1)
  - HEREDITARY ANGIOEDEMA [None]
